FAERS Safety Report 5228982-9 (Version None)
Quarter: 2007Q1

REPORT INFORMATION
  Report Type: 
  Country: None (occurrence: None)
  Receive Date: 20070205
  Receipt Date: 20070122
  Transmission Date: 20070707
  Serious: Yes (Death)
  Sender: FDA-Public Use
  Company Number: DE-ELI_LILLY_AND_COMPANY-DE200701003965

PATIENT
  Age: 73 Year
  Sex: Female

DRUGS (5)
  1. YENTREVE [Suspect]
     Indication: STRESS URINARY INCONTINENCE
     Dosage: 20 MG, 2/D
     Route: 048
     Dates: start: 20050815, end: 20060825
  2. ENAHEXAL [Concomitant]
     Indication: HYPERTENSION
     Dosage: UNK, 2/D
  3. LOFTAN [Concomitant]
     Dosage: 4 MG, DAILY (1/D)
  4. THEOPHYLLINE [Concomitant]
     Dosage: 300 MG, DAILY (1/D)
  5. DICLAC [Concomitant]
     Dosage: UNK, AS NEEDED

REACTIONS (2)
  - MULTI-ORGAN FAILURE [None]
  - NON-HODGKIN'S LYMPHOMA [None]
